FAERS Safety Report 15001509 (Version 1)
Quarter: 2018Q2

REPORT INFORMATION
  Report Type: Spontaneous
  Country: US (occurrence: US)
  Receive Date: 20180524
  Receipt Date: 20180524
  Transmission Date: 20180711
  Serious: Yes (Life-Threatening, Hospitalization)
  Sender: FDA-Public Use
  Company Number: None

PATIENT
  Age: 71 Year
  Sex: Male
  Weight: 171 kg

DRUGS (12)
  1. OMEPRAZOLA [Concomitant]
  2. TRAZDONE [Concomitant]
     Active Substance: TRAZODONE HYDROCHLORIDE
  3. INDOMETHACIN. [Concomitant]
     Active Substance: INDOMETHACIN
  4. MAGNESIUM [Concomitant]
     Active Substance: MAGNESIUM
  5. POTASSIUM [Concomitant]
     Active Substance: POTASSIUM
  6. DILTIZEM [Concomitant]
  7. GARLIC. [Concomitant]
     Active Substance: GARLIC
  8. METFORMIN [Concomitant]
     Active Substance: METFORMIN HYDROCHLORIDE
  9. ELIQUIS [Suspect]
     Active Substance: APIXABAN
     Indication: THROMBOSIS PROPHYLAXIS
     Dosage: ?          QUANTITY:2 DF DOSAGE FORM;?
     Route: 048
     Dates: start: 20171212, end: 20180309
  10. COLCHICINE. [Concomitant]
     Active Substance: COLCHICINE
  11. CYCLOBENZA [Concomitant]
  12. FISH OIL [Concomitant]
     Active Substance: FISH OIL

REACTIONS (2)
  - Cerebrovascular accident [None]
  - Cerebral haemorrhage [None]

NARRATIVE: CASE EVENT DATE: 20180309
